FAERS Safety Report 6208662-3 (Version None)
Quarter: 2009Q2

REPORT INFORMATION
  Report Type: 
  Country: None (occurrence: None)
  Receive Date: 20090529
  Receipt Date: 20090525
  Transmission Date: 20091009
  Serious: Yes (Life-Threatening)
  Sender: FDA-Public Use
  Company Number: JP-GENENTECH-283807

PATIENT
  Sex: Female

DRUGS (1)
  1. GRTPA [Suspect]
     Indication: CEREBRAL ARTERY EMBOLISM
     Dosage: UNK
     Route: 042
     Dates: start: 20090210, end: 20090210

REACTIONS (1)
  - ACUTE MYOCARDIAL INFARCTION [None]
